FAERS Safety Report 6231616-8 (Version None)
Quarter: 2009Q2

REPORT INFORMATION
  Report Type: 
  Country: None (occurrence: None)
  Receive Date: 20090616
  Receipt Date: 20090608
  Transmission Date: 20091009
  Serious: Yes (Hospitalization)
  Sender: FDA-Public Use
  Company Number: GB-B.I. PHARMACEUTICALS,INC./RIDGEFIELD-2008-UK-01792UK

PATIENT
  Sex: Female

DRUGS (6)
  1. VIRAMUNE [Suspect]
     Indication: HIV INFECTION
     Dosage: 200MG
     Route: 048
     Dates: start: 20080521, end: 20080626
  2. TRUVADA [Concomitant]
  3. KIVEXA [Concomitant]
  4. COMBIVIR [Concomitant]
     Indication: HIV INFECTION
     Dosage: 1ANZ
     Route: 048
  5. KALETRA [Concomitant]
     Dosage: 2 TABLETS X 2 DAILY
     Route: 048
  6. EFAVIRENZ [Concomitant]
     Dosage: 60MG
     Route: 048

REACTIONS (4)
  - ABDOMINAL PAIN UPPER [None]
  - CD4 LYMPHOCYTES INCREASED [None]
  - HEPATIC ENZYME INCREASED [None]
  - IMMUNE RECONSTITUTION SYNDROME [None]
